FAERS Safety Report 15869111 (Version 1)
Quarter: 2019Q1

REPORT INFORMATION
  Report Type: Report from Study
  Country: US (occurrence: US)
  Receive Date: 20190125
  Receipt Date: 20190125
  Transmission Date: 20190417
  Serious: Yes (Other)
  Sender: FDA-Public Use
  Company Number: US-GILEAD-2019-0386414

PATIENT
  Age: 55 Year
  Sex: Female

DRUGS (21)
  1. DILAUDID [Concomitant]
     Active Substance: HYDROMORPHONE HYDROCHLORIDE
  2. GABAPENTIN. [Concomitant]
     Active Substance: GABAPENTIN
  3. ASPIRIN (E.C.) [Concomitant]
     Active Substance: ASPIRIN
  4. FLONASE [Concomitant]
     Active Substance: FLUTICASONE PROPIONATE
  5. AMOXICILLIN. [Concomitant]
     Active Substance: AMOXICILLIN
  6. BENZONATATE. [Concomitant]
     Active Substance: BENZONATATE
  7. PERCOCET [OXYCODONE HYDROCHLORIDE;OXYCODONE TEREPHTHALATE;PARACETAMOL] [Concomitant]
     Active Substance: ACETAMINOPHEN\OXYCODONE HYDROCHLORIDE\OXYCODONE TEREPHTHALATE
  8. SEROQUEL [Concomitant]
     Active Substance: QUETIAPINE FUMARATE
  9. CLARITIN ALLERGY DECONGESTANT [Concomitant]
  10. DILTIAZEM. [Concomitant]
     Active Substance: DILTIAZEM
  11. SINGULAIR [Concomitant]
     Active Substance: MONTELUKAST SODIUM
  12. SPIRIVA [Concomitant]
     Active Substance: TIOTROPIUM BROMIDE MONOHYDRATE
  13. AMBRISENTAN [Suspect]
     Active Substance: AMBRISENTAN
     Indication: PULMONARY HYPERTENSION
     Dosage: 10 MG, QD
     Route: 065
     Dates: start: 20171003
  14. UPTRAVI [Suspect]
     Active Substance: SELEXIPAG
     Indication: PRODUCT USED FOR UNKNOWN INDICATION
     Route: 065
  15. ADCIRCA [Concomitant]
     Active Substance: TADALAFIL
  16. ADVAIR HFA [Concomitant]
     Active Substance: FLUTICASONE PROPIONATE\SALMETEROL XINAFOATE
  17. PANTOPRAZOLE [Concomitant]
     Active Substance: PANTOPRAZOLE
  18. PHENYTOIN. [Concomitant]
     Active Substance: PHENYTOIN
  19. PREDNISONE. [Concomitant]
     Active Substance: PREDNISONE
  20. SILDENAFIL. [Concomitant]
     Active Substance: SILDENAFIL
  21. ONDANSETRON [Concomitant]
     Active Substance: ONDANSETRON

REACTIONS (6)
  - Hepatomegaly [Not Recovered/Not Resolved]
  - Nephrolithiasis [Not Recovered/Not Resolved]
  - Amnesia [Not Recovered/Not Resolved]
  - Thyroid disorder [Not Recovered/Not Resolved]
  - Seizure [Not Recovered/Not Resolved]
  - Autoscopy [Not Recovered/Not Resolved]
